FAERS Safety Report 25450376 (Version 1)
Quarter: 2025Q2

REPORT INFORMATION
  Report Type: Spontaneous
  Country: US (occurrence: US)
  Receive Date: 20250618
  Receipt Date: 20250618
  Transmission Date: 20250716
  Serious: Yes (Hospitalization, Other)
  Sender: AMGEN
  Company Number: US-AMGEN-USASP2025111997

PATIENT

DRUGS (2)
  1. PREDNISONE [Suspect]
     Active Substance: PREDNISONE
     Indication: Immunosuppressant drug therapy
     Route: 065
  2. SIROLIMUS [Concomitant]
     Active Substance: SIROLIMUS

REACTIONS (14)
  - Infection [Unknown]
  - Transplant rejection [Unknown]
  - Cytomegalovirus viraemia [Unknown]
  - Pulmonary toxicity [Unknown]
  - Coronary artery disease [Unknown]
  - Diarrhoea [Unknown]
  - Mouth ulceration [Unknown]
  - Oedema peripheral [Unknown]
  - Proteinuria [Unknown]
  - Hyperlipidaemia [Unknown]
  - Impaired healing [Unknown]
  - Folliculitis [Unknown]
  - Rash [Unknown]
  - Myalgia [Unknown]
